FAERS Safety Report 4760805-4 (Version None)
Quarter: 2005Q3

REPORT INFORMATION
  Report Type: 
  Country: None (occurrence: None)
  Receive Date: 20050901
  Receipt Date: 20050818
  Transmission Date: 20060218
  Serious: Yes (Other)
  Sender: FDA-Public Use
  Company Number: 2005118194

PATIENT
  Age: 13 Year
  Sex: Male
  Weight: 58.9676 kg

DRUGS (7)
  1. BENADRYL ALLERGY (DIPHENYDRAMINE (DIPHENYDRAMINE) [Suspect]
     Indication: SLEEP DISORDER
     Dosage: 10 (3CC) SYRINGES 1X A NIGHT, ORAL
     Route: 048
     Dates: start: 20050810, end: 20050817
  2. BENADRYL ALLERGY (DIPHENYDRAMINE (DIPHENYDRAMINE) [Suspect]
  3. FUROSEMIDE [Concomitant]
  4. VALPROATE SODIUM [Concomitant]
  5. MONTELUKAST SODIUM (MONTELUKAST SODIUM) [Concomitant]
  6. ENALAPRIL MALEATE [Concomitant]
  7. DIGOXIN [Concomitant]

REACTIONS (1)
  - GRAND MAL CONVULSION [None]
